FAERS Safety Report 5713708-2 (Version None)
Quarter: 2008Q2

REPORT INFORMATION
  Report Type: 
  Country: None (occurrence: None)
  Receive Date: 20080421
  Receipt Date: 20080414
  Transmission Date: 20081010
  Serious: Yes (Other)
  Sender: FDA-Public Use
  Company Number: 2008009456

PATIENT
  Age: 22 Year
  Sex: Male
  Weight: 81.6475 kg

DRUGS (1)
  1. ZYRTEC [Suspect]
     Dosage: 1, ONE TIME A DAY (1 IN 1 D), ORAL
     Route: 048
     Dates: start: 20080401, end: 20080414

REACTIONS (1)
  - ANAL HAEMORRHAGE [None]
